FAERS Safety Report 6021615-3 (Version None)
Quarter: 2008Q4

REPORT INFORMATION
  Report Type: 
  Country: None (occurrence: None)
  Receive Date: 20081222
  Receipt Date: 20081111
  Transmission Date: 20090506
  Serious: No
  Sender: FDA-Public Use
  Company Number: SPV1-2008-02499

PATIENT
  Age: 24 Year
  Sex: Female
  Weight: 59 kg

DRUGS (2)
  1. VYVANSE [Suspect]
     Indication: ATTENTION DEFICIT/HYPERACTIVITY DISORDER
     Dosage: 70 MG, 1X/DAY:QD, ORAL
     Route: 048
     Dates: start: 20081103
  2. DARVOCET [Suspect]
     Indication: TOOTHACHE
     Dosage: 1 TABLET, 3X/DAY:TID, ORAL
     Route: 048
     Dates: start: 20081105

REACTIONS (2)
  - DEPRESSED MOOD [None]
  - ENERGY INCREASED [None]
